FAERS Safety Report 25755480 (Version 1)
Quarter: 2025Q3

REPORT INFORMATION
  Report Type: Spontaneous
  Country: US (occurrence: US)
  Receive Date: 20250903
  Receipt Date: 20250903
  Transmission Date: 20251020
  Serious: Yes (Life-Threatening, Hospitalization)
  Sender: MYLAN
  Company Number: US-MYLANLABS-2025M1074126

PATIENT
  Age: 49 Year
  Sex: Female

DRUGS (28)
  1. FENTANYL [Suspect]
     Active Substance: FENTANYL
     Indication: Analgesic therapy
  2. FENTANYL [Suspect]
     Active Substance: FENTANYL
  3. FENTANYL [Suspect]
     Active Substance: FENTANYL
     Route: 065
  4. FENTANYL [Suspect]
     Active Substance: FENTANYL
     Route: 065
  5. FENTANYL [Suspect]
     Active Substance: FENTANYL
     Dosage: 50 MICROGRAM, QH, INFUSION
     Dates: start: 202503, end: 202503
  6. FENTANYL [Suspect]
     Active Substance: FENTANYL
     Dosage: 50 MICROGRAM, QH, INFUSION
     Dates: start: 202503, end: 202503
  7. FENTANYL [Suspect]
     Active Substance: FENTANYL
     Dosage: 50 MICROGRAM, QH, INFUSION
     Route: 065
     Dates: start: 202503, end: 202503
  8. FENTANYL [Suspect]
     Active Substance: FENTANYL
     Dosage: 50 MICROGRAM, QH, INFUSION
     Route: 065
     Dates: start: 202503, end: 202503
  9. FENTANYL [Suspect]
     Active Substance: FENTANYL
  10. FENTANYL [Suspect]
     Active Substance: FENTANYL
     Route: 065
  11. FENTANYL [Suspect]
     Active Substance: FENTANYL
  12. FENTANYL [Suspect]
     Active Substance: FENTANYL
     Route: 065
  13. PROPOFOL [Suspect]
     Active Substance: PROPOFOL
     Indication: Induction of anaesthesia
  14. PROPOFOL [Suspect]
     Active Substance: PROPOFOL
     Route: 042
  15. PROPOFOL [Suspect]
     Active Substance: PROPOFOL
     Route: 042
  16. PROPOFOL [Suspect]
     Active Substance: PROPOFOL
  17. ROCURONIUM [Concomitant]
     Active Substance: ROCURONIUM BROMIDE
     Indication: Neuromuscular blocking therapy
  18. ROCURONIUM [Concomitant]
     Active Substance: ROCURONIUM BROMIDE
     Route: 042
  19. ROCURONIUM [Concomitant]
     Active Substance: ROCURONIUM BROMIDE
     Route: 042
  20. ROCURONIUM [Concomitant]
     Active Substance: ROCURONIUM BROMIDE
  21. SEVOFLURANE [Concomitant]
     Active Substance: SEVOFLURANE
     Indication: Maintenance of anaesthesia
  22. SEVOFLURANE [Concomitant]
     Active Substance: SEVOFLURANE
     Route: 065
  23. SEVOFLURANE [Concomitant]
     Active Substance: SEVOFLURANE
     Route: 065
  24. SEVOFLURANE [Concomitant]
     Active Substance: SEVOFLURANE
  25. LISINOPRIL [Concomitant]
     Active Substance: LISINOPRIL
     Indication: Hypertension
     Dosage: 10 MILLIGRAM, QD
  26. LISINOPRIL [Concomitant]
     Active Substance: LISINOPRIL
     Dosage: 10 MILLIGRAM, QD
     Route: 065
  27. LISINOPRIL [Concomitant]
     Active Substance: LISINOPRIL
     Dosage: 10 MILLIGRAM, QD
     Route: 065
  28. LISINOPRIL [Concomitant]
     Active Substance: LISINOPRIL
     Dosage: 10 MILLIGRAM, QD

REACTIONS (4)
  - Chest wall rigidity [Recovered/Resolved]
  - Respiratory failure [Recovered/Resolved]
  - Respiratory distress [Recovered/Resolved]
  - Hypoventilation [Recovered/Resolved]

NARRATIVE: CASE EVENT DATE: 20250301
